FAERS Safety Report 22269618 (Version 2)
Quarter: 2025Q4

REPORT INFORMATION
  Report Type: Spontaneous
  Country: US (occurrence: US)
  Receive Date: 20230501
  Receipt Date: 20251020
  Transmission Date: 20260117
  Serious: No
  Sender: ABBVIE
  Company Number: US-ABBVIE-4747088

PATIENT
  Age: 50 Year
  Sex: Male

DRUGS (1)
  1. RISANKIZUMAB [Suspect]
     Active Substance: RISANKIZUMAB
     Indication: Guttate psoriasis
     Route: 058

REACTIONS (1)
  - Lichen planus pemphigoides [Recovered/Resolved]
